FAERS Safety Report 4555819-3 (Version None)
Quarter: 2005Q1

REPORT INFORMATION
  Report Type: 
  Country: None (occurrence: None)
  Receive Date: 20050112
  Receipt Date: 20040731
  Transmission Date: 20050727
  Serious: Yes (Other)
  Sender: FDA-Public Use
  Company Number: 200419721BWH

PATIENT
  Age: 35 Year
  Sex: Female
  Weight: 58.9676 kg

DRUGS (8)
  1. CIPRO [Suspect]
     Indication: CONJUNCTIVITIS
     Dosage: 500 MG, BID, ORAL
     Route: 048
     Dates: start: 20040705, end: 20040708
  2. CIPRO [Suspect]
     Indication: TONSILLITIS
     Dosage: 500 MG, BID, ORAL
     Route: 048
     Dates: start: 20040705, end: 20040708
  3. AUGMENTINE [Concomitant]
  4. ZITHROMAX [Concomitant]
  5. CEPHALEXIN [Concomitant]
  6. HEPATITIS B VACCINE [Concomitant]
  7. HEPATITIS A VACCINE [Concomitant]
  8. MMR ^MSD^ [Concomitant]

REACTIONS (9)
  - ARTHRALGIA [None]
  - ARTHROPATHY [None]
  - ASTHENIA [None]
  - CARPAL TUNNEL SYNDROME [None]
  - HYPOKINESIA [None]
  - JOINT SWELLING [None]
  - MUSCULOSKELETAL DISCOMFORT [None]
  - PAIN IN EXTREMITY [None]
  - TENDONITIS [None]
